FAERS Safety Report 22395464 (Version 1)
Quarter: 2023Q2

REPORT INFORMATION
  Report Type: Spontaneous
  Country: DE (occurrence: DE)
  Receive Date: 20230601
  Receipt Date: 20230601
  Transmission Date: 20230722
  Serious: Yes (Death, Hospitalization, Other)
  Sender: FDA-Public Use
  Company Number: DE-002147023-NVSC2023DE102937

PATIENT
  Age: 26 Year
  Sex: Female

DRUGS (10)
  1. DEXAMETHASONE [Suspect]
     Active Substance: DEXAMETHASONE
     Indication: Product used for unknown indication
     Dosage: 12 MG
     Route: 042
     Dates: start: 20210806
  2. PACLITAXEL [Suspect]
     Active Substance: PACLITAXEL
     Indication: Triple negative breast cancer
     Dosage: UNK
     Route: 065
  3. ATEZOLIZUMAB [Suspect]
     Active Substance: ATEZOLIZUMAB
     Indication: Triple negative breast cancer
     Dosage: UNK
     Route: 065
     Dates: start: 2021, end: 2021
  4. CIMETIDINE [Suspect]
     Active Substance: CIMETIDINE
     Indication: Product used for unknown indication
     Dosage: 200 MG
     Route: 040
     Dates: start: 20210806
  5. ACETAMINOPHEN [Suspect]
     Active Substance: ACETAMINOPHEN
     Indication: Product used for unknown indication
     Dosage: 1000 MG
     Route: 040
     Dates: start: 20210806
  6. FILGRASTIM [Suspect]
     Active Substance: FILGRASTIM
     Indication: White blood cell count increased
     Route: 065
  7. DIMETHINDENE [Suspect]
     Active Substance: DIMETHINDENE
     Indication: Product used for unknown indication
     Dosage: 4 MG
     Route: 040
     Dates: start: 20210806
  8. CARBOPLATIN [Suspect]
     Active Substance: CARBOPLATIN
     Indication: Triple negative breast cancer
     Dosage: UNK
     Route: 065
  9. CARBOPLATIN [Suspect]
     Active Substance: CARBOPLATIN
     Dosage: UNK (4 CYCLES WITHIN 21 DAYS (DAY 1, 8, 15)) (INFUSION)
     Dates: start: 20210305, end: 2021
  10. PACLITAXEL [Suspect]
     Active Substance: PACLITAXEL
     Indication: Triple negative breast cancer
     Dosage: UNK (4 CYCLES WITHIN 21 DAYS (DAY 1, 8, 15)) (INFUSION)
     Route: 065
     Dates: start: 20210305, end: 2021

REACTIONS (49)
  - Death [Fatal]
  - White blood cell count decreased [Recovering/Resolving]
  - Cough [Not Recovered/Not Resolved]
  - Dyspnoea [Unknown]
  - Radiation pneumonitis [Not Recovered/Not Resolved]
  - Pulmonary fibrosis [Unknown]
  - Dysstasia [Unknown]
  - Feeling drunk [Unknown]
  - Fluid intake reduced [Unknown]
  - Flatulence [Unknown]
  - Skin hypertrophy [Unknown]
  - Drug intolerance [Unknown]
  - Eating disorder [Unknown]
  - C-reactive protein increased [Unknown]
  - Restlessness [Unknown]
  - Pelvic floor muscle weakness [Unknown]
  - Alopecia [Unknown]
  - Muscle spasms [Unknown]
  - Loss of bladder sensation [Unknown]
  - Hot flush [Unknown]
  - Taste disorder [Unknown]
  - Tremor [Unknown]
  - Abdominal distension [Unknown]
  - Limb discomfort [Unknown]
  - Hypoaesthesia [Unknown]
  - Procedural pain [Unknown]
  - Feeling hot [Unknown]
  - Feeling abnormal [Recovering/Resolving]
  - Lymphadenopathy [Unknown]
  - Disease recurrence [Unknown]
  - Abdominal pain [Unknown]
  - Disturbance in attention [Recovering/Resolving]
  - Hypoaesthesia [Unknown]
  - Bone pain [Unknown]
  - Memory impairment [Recovering/Resolving]
  - Device occlusion [Not Recovered/Not Resolved]
  - Erythema [Unknown]
  - Diarrhoea [Unknown]
  - Constipation [Not Recovered/Not Resolved]
  - Night sweats [Unknown]
  - Pyrexia [Unknown]
  - Arthralgia [Unknown]
  - Insomnia [Unknown]
  - Platelet count decreased [Unknown]
  - Vomiting [Unknown]
  - Fatigue [Unknown]
  - Nausea [Unknown]
  - Product use in unapproved indication [Unknown]
  - Drug ineffective [Unknown]

NARRATIVE: CASE EVENT DATE: 20210101
